FAERS Safety Report 14347759 (Version 5)
Quarter: 2018Q1

REPORT INFORMATION
  Report Type: Spontaneous
  Country: US (occurrence: US)
  Receive Date: 20180103
  Receipt Date: 20180316
  Transmission Date: 20180509
  Serious: Yes (Hospitalization)
  Sender: FDA-Public Use
  Company Number: US-PFIZER INC-2017554957

PATIENT
  Age: 79 Year
  Sex: Female

DRUGS (1)
  1. INLYTA [Suspect]
     Active Substance: AXITINIB
     Indication: ADRENAL DISORDER
     Dosage: 5 MG, TWICE DAILY (ONCE EVERY 12 HOURS)
     Dates: start: 201712

REACTIONS (10)
  - Influenza like illness [Not Recovered/Not Resolved]
  - Influenza [Unknown]
  - Migraine [Unknown]
  - Decreased appetite [Unknown]
  - Diarrhoea [Not Recovered/Not Resolved]
  - Respiratory disorder [Unknown]
  - Urinary tract infection [Unknown]
  - Headache [Unknown]
  - Gait disturbance [Unknown]
  - Nasopharyngitis [Unknown]

NARRATIVE: CASE EVENT DATE: 201712
